FAERS Safety Report 12966748 (Version 1)
Quarter: 2016Q4

REPORT INFORMATION
  Report Type: Report from Study
  Country: US (occurrence: US)
  Receive Date: 20161123
  Receipt Date: 20161123
  Transmission Date: 20170207
  Serious: Yes (Hospitalization, Other)
  Sender: FDA-Public Use
  Company Number: US-AMGEN-USASP2016162574

PATIENT
  Age: 80 Year
  Sex: Female

DRUGS (2)
  1. PROLIA [Suspect]
     Active Substance: DENOSUMAB
     Indication: BONE DENSITY ABNORMAL
  2. PROLIA [Suspect]
     Active Substance: DENOSUMAB
     Indication: OSTEOPOROSIS
     Dosage: UNK
     Route: 065
     Dates: start: 201505

REACTIONS (6)
  - Inappropriate schedule of drug administration [Unknown]
  - Drug dose omission [Unknown]
  - Thrombosis [Unknown]
  - Spinal nerve stimulator implantation [Unknown]
  - Hip arthroplasty [Unknown]
  - Nerve compression [Unknown]

NARRATIVE: CASE EVENT DATE: 201510
